FAERS Safety Report 9484254 (Version 2)
Quarter: 2013Q3

REPORT INFORMATION
  Report Type: Spontaneous
  Country: US (occurrence: US)
  Receive Date: 20130828
  Receipt Date: 20130828
  Transmission Date: 20140515
  Serious: Yes (Death)
  Sender: FDA-Public Use
  Company Number: US-AMGEN-KDL393858

PATIENT
  Sex: Male

DRUGS (10)
  1. ENBREL [Suspect]
     Indication: PRODUCT USED FOR UNKNOWN INDICATION
     Dosage: 50 MG, QWK
     Route: 058
     Dates: start: 20090402, end: 20090804
  2. PREDNISONE [Concomitant]
     Dosage: UNK UNK, UNK
     Route: 065
  3. SIMVASTATIN [Concomitant]
     Dosage: UNK UNK, UNK
     Route: 065
  4. FOLIC ACID [Concomitant]
     Dosage: UNK UNK, UNK
     Route: 065
  5. CLOPIDOGREL BISULFATE [Concomitant]
     Dosage: UNK UNK, UNK
     Route: 065
  6. TIOTROPIUM BROMIDE [Concomitant]
     Dosage: UNK UNK, UNK
     Route: 055
  7. ACETYLSALICYLIC ACID [Concomitant]
     Dosage: UNK UNK, UNK
     Route: 065
  8. CALCIUM PHOSPHATE/CALCIUM SODIUM LACTATE/ERGOCALCIFEROL [Concomitant]
  9. FUROSEMIDE [Concomitant]
     Dosage: UNK UNK, UNK
     Route: 065
  10. METOPROLOL TARTRATE [Concomitant]
     Dosage: UNK UNK, UNK
     Route: 065

REACTIONS (1)
  - Death [Fatal]
